FAERS Safety Report 4347091-4 (Version None)
Quarter: 2004Q2

REPORT INFORMATION
  Report Type: 
  Country: None (occurrence: None)
  Receive Date: 20040426
  Receipt Date: 20040318
  Transmission Date: 20050107
  Serious: Yes (Other)
  Sender: FDA-Public Use
  Company Number: DE-GLAXOSMITHKLINE-D0043446A

PATIENT
  Age: 73 Year
  Sex: Female

DRUGS (6)
  1. LOFTAN [Suspect]
     Dosage: 8MG TWICE PER DAY
     Route: 048
     Dates: start: 19950101, end: 20040304
  2. PULMICORT [Concomitant]
     Dosage: 2PUFF TWICE PER DAY
     Route: 055
     Dates: start: 19900101, end: 20040304
  3. BEROTEC [Concomitant]
     Route: 055
     Dates: start: 19900101, end: 20020101
  4. VENTILAT [Concomitant]
     Route: 055
     Dates: start: 20020101
  5. L-THYROXIN [Concomitant]
     Dosage: 75MCG PER DAY
     Route: 048
  6. ALPHA TOCOPHEROL ACETATE [Concomitant]
     Dosage: 1CAP PER DAY
     Route: 048
     Dates: end: 20040304

REACTIONS (4)
  - ASTHMA [None]
  - ATRIAL FIBRILLATION [None]
  - BRONCHITIS [None]
  - DYSPNOEA [None]
